FAERS Safety Report 9778425 (Version 1)
Quarter: 2013Q4

REPORT INFORMATION
  Report Type: Spontaneous
  Country: US (occurrence: None)
  Receive Date: 20131219
  Receipt Date: 20131219
  Transmission Date: 20140711
  Serious: Yes (Life-Threatening, Hospitalization)
  Sender: FDA-Public Use
  Company Number: USA/USA/13/0036314

PATIENT
  Age: 73 Year
  Sex: Female
  Weight: 68.49 kg

DRUGS (4)
  1. AMITIZA (LUBIPROSTONE) [Suspect]
  2. ASPIRIN (ACETYLSALYTIC ACID) [Concomitant]
  3. LOVASTATIN (LOVASTATIN) [Concomitant]
  4. LEVOTHROXINE (LEVOTHYROXINE) [Concomitant]

REACTIONS (3)
  - Transient ischaemic attack [None]
  - Carotid artery stenosis [None]
  - Subclavian artery stenosis [None]
